FAERS Safety Report 5075692-7 (Version None)
Quarter: 2006Q3

REPORT INFORMATION
  Report Type: 
  Country: None (occurrence: None)
  Receive Date: 20060807
  Receipt Date: 20060807
  Transmission Date: 20061208
  Serious: Yes (Hospitalization)
  Sender: FDA-Public Use
  Company Number: None

PATIENT
  Age: 57 Year
  Sex: Male

DRUGS (1)
  1. ULTRAVIST 300 [Suspect]
     Indication: HAEMATURIA
     Dosage: 145 ML X 1 IV
     Route: 042
     Dates: start: 20060209

REACTIONS (3)
  - DYSPNOEA [None]
  - PRURITUS [None]
  - SWELLING FACE [None]
